FAERS Safety Report 17391105 (Version 1)
Quarter: 2020Q1

REPORT INFORMATION
  Report Type: Spontaneous
  Country: FR (occurrence: FR)
  Receive Date: 20200207
  Receipt Date: 20200207
  Transmission Date: 20200409
  Serious: Yes (Congenital Anomaly, Other)
  Sender: FDA-Public Use
  Company Number: FR-MYLANLABS-2020M1013479

PATIENT
  Age: 13 Year
  Sex: Male

DRUGS (2)
  1. ETANERCEPT [Suspect]
     Active Substance: ETANERCEPT
     Indication: PRODUCT USED FOR UNKNOWN INDICATION
     Dosage: MATERNAL DOSE: 25 MG, BIW
     Route: 064
  2. PREDNISONE. [Suspect]
     Active Substance: PREDNISONE
     Indication: PRODUCT USED FOR UNKNOWN INDICATION
     Dosage: MATERNAL DOSE: 5MG, QD
     Route: 064

REACTIONS (5)
  - Adrenogenital syndrome [Recovered/Resolved]
  - Urinary tract infection neonatal [Recovered/Resolved]
  - Jaundice neonatal [Recovered/Resolved]
  - Escherichia urinary tract infection [Recovered/Resolved]
  - Foetal exposure during pregnancy [Recovered/Resolved]
